FAERS Safety Report 22801098 (Version 2)
Quarter: 2023Q4

REPORT INFORMATION
  Report Type: Spontaneous
  Country: FR (occurrence: FR)
  Receive Date: 20230808
  Receipt Date: 20231109
  Transmission Date: 20240110
  Serious: Yes (Hospitalization, Other)
  Sender: FDA-Public Use
  Company Number: None

PATIENT
  Age: 76 Year
  Sex: Female
  Weight: 63 kg

DRUGS (15)
  1. PACLITAXEL [Suspect]
     Active Substance: PACLITAXEL
     Dosage: 322 MG
     Route: 042
     Dates: start: 20230629, end: 20230629
  2. CARBOPLATIN [Suspect]
     Active Substance: CARBOPLATIN
     Dosage: 610 MG
     Route: 042
     Dates: start: 20230629, end: 20230629
  3. ALLOPURINOL [Suspect]
     Active Substance: ALLOPURINOL
     Indication: Gout
     Dosage: 100 MG, ONCE DAILY
     Route: 048
     Dates: end: 20230713
  4. LANSOPRAZOLE [Suspect]
     Active Substance: LANSOPRAZOLE
     Dosage: 15 MG, ONCE DAILY
     Route: 048
     Dates: start: 20230619, end: 20230712
  5. KEYTRUDA [Suspect]
     Active Substance: PEMBROLIZUMAB
     Indication: Lung adenocarcinoma stage IV
     Dosage: 200 MG
     Route: 042
     Dates: start: 20230629, end: 20230629
  6. PREDNISOLONE [Concomitant]
     Active Substance: PREDNISOLONE
  7. ATORVASTATIN [Concomitant]
     Active Substance: ATORVASTATIN
  8. OXAZEPAM [Concomitant]
     Active Substance: OXAZEPAM
  9. EZETIMIBE [Concomitant]
     Active Substance: EZETIMIBE
  10. ACETAMINOPHEN [Concomitant]
     Active Substance: ACETAMINOPHEN
  11. KARDEGIC [Concomitant]
     Active Substance: ASPIRIN DL-LYSINE
  12. FOLIC ACID [Concomitant]
     Active Substance: FOLIC ACID
  13. AMITRIPTYLINE [Concomitant]
     Active Substance: AMITRIPTYLINE
  14. CALCIUM PHOSPHATE, DIBASIC, ANHYDROUS\MAGNESIUM GLYCEROPHOSPHATE\PHOSP [Concomitant]
     Active Substance: CALCIUM PHOSPHATE, DIBASIC, ANHYDROUS\MAGNESIUM GLYCEROPHOSPHATE\PHOSPHORIC ACID\SODIUM PHOSPHATE, D
  15. BISOPROLOL FUMARATE [Concomitant]
     Active Substance: BISOPROLOL FUMARATE

REACTIONS (1)
  - Toxic epidermal necrolysis [Recovered/Resolved]

NARRATIVE: CASE EVENT DATE: 20230707
